FAERS Safety Report 10243273 (Version 1)
Quarter: 2014Q2

REPORT INFORMATION
  Report Type: Spontaneous
  Country: US (occurrence: None)
  Receive Date: 20140616
  Receipt Date: 20140616
  Transmission Date: 20141212
  Serious: Yes (Life-Threatening)
  Sender: FDA-Public Use
  Company Number: None

PATIENT
  Age: 45 Year
  Sex: Female
  Weight: 113.4 kg

DRUGS (1)
  1. RISPERDAL 20MG JANSSEN PHARMACEUTICALS [Suspect]
     Indication: HALLUCINATION, AUDITORY
     Dosage: ONCE DAILY TAKEN BY MOUTH
     Route: 048

REACTIONS (1)
  - Pituitary tumour [None]
